FAERS Safety Report 5129409-8 (Version None)
Quarter: 2006Q4

REPORT INFORMATION
  Report Type: 
  Country: None (occurrence: None)
  Receive Date: 20061018
  Receipt Date: 20061009
  Transmission Date: 20070319
  Serious: Yes (Other)
  Sender: FDA-Public Use
  Company Number: PHFR2006GB03018

PATIENT
  Age: 60 Year
  Sex: Male

DRUGS (3)
  1. MYCOPHENOLATE MOFETIL [Suspect]
     Indication: RENAL TRANSPLANT
     Dosage: 360 MG, BID
     Route: 065
  2. MYCOPHENOLATE MOFETIL [Suspect]
     Dosage: 540 MG, BID
     Route: 065
     Dates: start: 20040301
  3. ANTIBIOTICS [Concomitant]

REACTIONS (2)
  - AMYLOIDOSIS [None]
  - DIARRHOEA [None]
